FAERS Safety Report 6396378-2 (Version None)
Quarter: 2009Q4

REPORT INFORMATION
  Report Type: 
  Country: None (occurrence: None)
  Receive Date: 20091012
  Receipt Date: 20091005
  Transmission Date: 20100525
  Serious: No
  Sender: FDA-Public Use
  Company Number: US-JNJFOC-20091002027

PATIENT
  Sex: Male
  Weight: 117.94 kg

DRUGS (2)
  1. DURAGESIC-100 [Suspect]
     Indication: MIGRAINE
     Route: 062
     Dates: start: 20091003
  2. UNKNOWN MEDICATION [Concomitant]

REACTIONS (3)
  - DRUG INEFFECTIVE [None]
  - INAPPROPRIATE SCHEDULE OF DRUG ADMINISTRATION [None]
  - MIGRAINE [None]
